FAERS Safety Report 9779391 (Version 2)
Quarter: 2014Q1

REPORT INFORMATION
  Report Type: Spontaneous
  Country: US (occurrence: US)
  Receive Date: 20131223
  Receipt Date: 20140219
  Transmission Date: 20141002
  Serious: Yes (Hospitalization)
  Sender: FDA-Public Use
  Company Number: US-GILEAD-2013-0090436

PATIENT
  Sex: Female
  Weight: 74.38 kg

DRUGS (18)
  1. LETAIRIS [Suspect]
     Indication: PULMONARY HYPERTENSION
     Dosage: 10 MG, QD
     Route: 048
     Dates: start: 20100514, end: 20131214
  2. ASPIRIN [Concomitant]
  3. VITAMIN B COMPLEX [Concomitant]
  4. CYANOCOBALAMIN [Concomitant]
  5. FERROUS SULFATE [Concomitant]
  6. GLUCOSAMINE SULFATE [Concomitant]
  7. DUONEB [Concomitant]
  8. COMBIVENT [Concomitant]
  9. LACTULOSE [Concomitant]
  10. LEVOTHYROXINE [Concomitant]
  11. PRILOSEC                           /00661201/ [Concomitant]
  12. REQUIP [Concomitant]
  13. DEMADEX                            /01036501/ [Concomitant]
  14. EFFEXOR [Concomitant]
  15. AMBIEN [Concomitant]
  16. LIPITOR [Concomitant]
  17. ARICEPT [Concomitant]
  18. ATROVENT [Concomitant]

REACTIONS (9)
  - Cardiac disorder [Unknown]
  - Heart valve incompetence [Unknown]
  - Fluid overload [Unknown]
  - Cough [Unknown]
  - Breath sounds abnormal [Unknown]
  - Dyspnoea [Unknown]
  - Fatigue [Unknown]
  - Oedema peripheral [Unknown]
  - Dyspnoea exertional [Unknown]
